FAERS Safety Report 15298905 (Version 2)
Quarter: 2018Q3

REPORT INFORMATION
  Report Type: Spontaneous
  Country: US (occurrence: US)
  Receive Date: 20180821
  Receipt Date: 20180831
  Transmission Date: 20181010
  Serious: Yes (Hospitalization)
  Sender: FDA-Public Use
  Company Number: US-CIPLA LTD.-2018US20842

PATIENT

DRUGS (2)
  1. TOPIRAMATE. [Suspect]
     Active Substance: TOPIRAMATE
     Indication: SEIZURE
     Dosage: 150 MG, QD, 1 TABLET, MORNING
     Route: 048
  2. TOPIRAMATE. [Suspect]
     Active Substance: TOPIRAMATE
     Indication: SEIZURE
     Dosage: 200 MG, QD, 1 TABLET, EVENING
     Route: 048

REACTIONS (2)
  - Treatment noncompliance [Unknown]
  - Adverse event [Not Recovered/Not Resolved]

NARRATIVE: CASE EVENT DATE: 20180721
